FAERS Safety Report 6776346-9 (Version None)
Quarter: 2010Q2

REPORT INFORMATION
  Report Type: 
  Country: None (occurrence: None)
  Receive Date: 20100615
  Receipt Date: 20100603
  Transmission Date: 20101027
  Serious: Yes (Disabling, Other)
  Sender: FDA-Public Use
  Company Number: 167-20484-08101917

PATIENT
  Age: 33 Year
  Sex: Female

DRUGS (8)
  1. INNOHEP [Suspect]
     Indication: ABORTION SPONTANEOUS
     Dosage: 4500 IU (4500 IU, 1 IN 1 D); 12000 IU (6000 IU, 2 IN 1 D); 6000 IU (3000 IU, 2 IN 1 D)
     Dates: end: 20030122
  2. INNOHEP [Suspect]
     Indication: PROPHYLAXIS
     Dosage: 4500 IU (4500 IU, 1 IN 1 D); 12000 IU (6000 IU, 2 IN 1 D); 6000 IU (3000 IU, 2 IN 1 D)
     Dates: end: 20030122
  3. INNOHEP [Suspect]
     Indication: ABORTION SPONTANEOUS
     Dosage: 4500 IU (4500 IU, 1 IN 1 D); 12000 IU (6000 IU, 2 IN 1 D); 6000 IU (3000 IU, 2 IN 1 D)
     Dates: end: 20030701
  4. INNOHEP [Suspect]
     Indication: PROPHYLAXIS
     Dosage: 4500 IU (4500 IU, 1 IN 1 D); 12000 IU (6000 IU, 2 IN 1 D); 6000 IU (3000 IU, 2 IN 1 D)
     Dates: end: 20030701
  5. INNOHEP [Suspect]
     Indication: ABORTION SPONTANEOUS
     Dosage: 4500 IU (4500 IU, 1 IN 1 D); 12000 IU (6000 IU, 2 IN 1 D); 6000 IU (3000 IU, 2 IN 1 D)
     Dates: end: 20030711
  6. INNOHEP [Suspect]
     Indication: PROPHYLAXIS
     Dosage: 4500 IU (4500 IU, 1 IN 1 D); 12000 IU (6000 IU, 2 IN 1 D); 6000 IU (3000 IU, 2 IN 1 D)
     Dates: end: 20030711
  7. CALCIUM (CALCIUM) [Concomitant]
  8. LAXATIVES (LAXATIVES) [Concomitant]

REACTIONS (13)
  - BACK PAIN [None]
  - BODY HEIGHT DECREASED [None]
  - BONE DENSITY DECREASED [None]
  - CAESAREAN SECTION [None]
  - CHEST PAIN [None]
  - CONSTIPATION [None]
  - DRUG EXPOSURE DURING PREGNANCY [None]
  - MOBILITY DECREASED [None]
  - NO THERAPEUTIC RESPONSE [None]
  - OSTEOPENIA [None]
  - PAIN [None]
  - PREGNANCY [None]
  - STERNAL FRACTURE [None]
